FAERS Safety Report 5584626-8 (Version None)
Quarter: 2008Q1

REPORT INFORMATION
  Report Type: 
  Country: None (occurrence: None)
  Receive Date: 20080108
  Receipt Date: 20071227
  Transmission Date: 20080703
  Serious: Yes (Hospitalization, Other)
  Sender: FDA-Public Use
  Company Number: US-PFIZER INC-2007094575

PATIENT
  Sex: Female

DRUGS (5)
  1. DETROL LA [Suspect]
     Indication: HYPERTONIC BLADDER
     Route: 048
  2. CARDIZEM [Concomitant]
  3. METFORMIN HCL [Concomitant]
  4. COZAAR [Concomitant]
  5. SYNTHROID [Concomitant]

REACTIONS (5)
  - CARDIAC FAILURE CONGESTIVE [None]
  - DRUG INEFFECTIVE [None]
  - NEPHROLITHIASIS [None]
  - URETERIC OBSTRUCTION [None]
  - URINARY TRACT INFECTION [None]
